FAERS Safety Report 8265770-3 (Version None)
Quarter: 2012Q2

REPORT INFORMATION
  Report Type: 
  Country: None (occurrence: None)
  Receive Date: 20120406
  Receipt Date: 20120329
  Transmission Date: 20120825
  Serious: Yes (Hospitalization)
  Sender: FDA-Public Use
  Company Number: PHHY2012SI026803

PATIENT
  Sex: Female

DRUGS (18)
  1. PROMAZINE HYDROCHLORIDE [Suspect]
     Indication: DEPRESSION
  2. FLUOXETINE [Suspect]
     Indication: DEMENTIA ALZHEIMER'S TYPE
     Dosage: 20 MG, BID
     Route: 048
  3. EXELON [Suspect]
     Indication: DEMENTIA ALZHEIMER'S TYPE
     Dosage: 6 MG, BID
     Route: 048
  4. EXELON [Suspect]
     Indication: DEPRESSION
  5. PROMAZINE HYDROCHLORIDE [Suspect]
     Indication: DEMENTIA ALZHEIMER'S TYPE
     Dosage: 25 MG, UNK
     Route: 048
  6. NEURONTIN [Suspect]
     Indication: DEPRESSION
  7. VALSACOR [Concomitant]
  8. LORAZEPAM [Suspect]
     Indication: DEPRESSION
  9. RISPERIDONE [Suspect]
     Indication: DEMENTIA ALZHEIMER'S TYPE
     Dosage: 0.5 MG, UNK
     Route: 048
  10. BERODUAL [Concomitant]
  11. FLUOXETINE [Suspect]
     Indication: DEPRESSION
  12. ZOLPIDEM TARTRATE [Suspect]
     Indication: DEMENTIA ALZHEIMER'S TYPE
     Dosage: 20 MG, UNK
     Route: 048
  13. RISPERIDONE [Suspect]
     Indication: DEPRESSION
  14. NEURONTIN [Suspect]
     Indication: DEMENTIA ALZHEIMER'S TYPE
     Dosage: 100 MG, BID
     Route: 048
  15. LANTREA [Concomitant]
  16. ZOLPIDEM TARTRATE [Suspect]
     Indication: DEPRESSION
  17. LORAZEPAM [Suspect]
     Indication: DEMENTIA ALZHEIMER'S TYPE
     Dosage: 2.5 MG, TID
     Route: 048
  18. BUPRENORPHINE [Concomitant]

REACTIONS (3)
  - SOMNOLENCE [None]
  - ASPIRATION [None]
  - PNEUMONIA ASPIRATION [None]
